FAERS Safety Report 18437793 (Version 1)
Quarter: 2020Q4

REPORT INFORMATION
  Report Type: Spontaneous
  Country: RU (occurrence: RU)
  Receive Date: 20201028
  Receipt Date: 20201028
  Transmission Date: 20210114
  Serious: Yes (Other)
  Sender: FDA-Public Use
  Company Number: RU-EISAI MEDICAL RESEARCH-EC-2020-082558

PATIENT
  Age: 39 Year
  Sex: Female
  Weight: 96 kg

DRUGS (3)
  1. FYCOMPA [Suspect]
     Active Substance: PERAMPANEL
     Indication: EPILEPSY
     Route: 048
     Dates: start: 20200330, end: 20201008
  2. FYCOMPA [Suspect]
     Active Substance: PERAMPANEL
     Route: 048
     Dates: start: 20201009
  3. ZONISAMIDE. [Concomitant]
     Active Substance: ZONISAMIDE
     Indication: EPILEPSY
     Route: 048
     Dates: start: 20200330

REACTIONS (1)
  - Dizziness [Recovering/Resolving]

NARRATIVE: CASE EVENT DATE: 20201009
